FAERS Safety Report 12509593 (Version 3)
Quarter: 2016Q4

REPORT INFORMATION
  Report Type: Report from Study
  Country: CA (occurrence: CA)
  Receive Date: 20160629
  Receipt Date: 20161228
  Transmission Date: 20170207
  Serious: Yes (Other)
  Sender: FDA-Public Use
  Company Number: CA-INCYTE CORPORATION-2013IN001410

PATIENT
  Age: 76 Year
  Sex: Female

DRUGS (50)
  1. JAKAVI [Suspect]
     Active Substance: RUXOLITINIB
     Indication: MYELOFIBROSIS
     Dosage: 10 MG, BID
     Route: 048
     Dates: start: 20130529
  2. LANSOPRAZOLE. [Concomitant]
     Active Substance: LANSOPRAZOLE
     Route: 065
  3. LANSOPRAZOLE. [Concomitant]
     Active Substance: LANSOPRAZOLE
     Route: 065
  4. VENTOLINE [Concomitant]
     Active Substance: ALBUTEROL
     Indication: PRODUCT USED FOR UNKNOWN INDICATION
     Dosage: UNK
     Route: 065
  5. BABY ASPIRIN [Concomitant]
     Active Substance: ASPIRIN
     Dosage: OT, QD
  6. BABY ASPIRIN [Concomitant]
     Active Substance: ASPIRIN
     Dosage: 80 MG, UNK
     Route: 065
  7. BABY ASPIRIN [Concomitant]
     Active Substance: ASPIRIN
     Dosage: UNK OT, QD
  8. APO-NAPROXEN [Concomitant]
     Active Substance: NAPROXEN
     Indication: PRODUCT USED FOR UNKNOWN INDICATION
     Route: 065
  9. LANSOPRAZOLE. [Concomitant]
     Active Substance: LANSOPRAZOLE
     Route: 065
  10. LANSOPRAZOLE. [Concomitant]
     Active Substance: LANSOPRAZOLE
     Route: 065
  11. LANSOPRAZOLE. [Concomitant]
     Active Substance: LANSOPRAZOLE
     Route: 065
  12. VENTOLINE [Concomitant]
     Active Substance: ALBUTEROL
     Dosage: OT, PRN
     Route: 065
  13. JAKAVI [Suspect]
     Active Substance: RUXOLITINIB
     Dosage: 15 MG, BID
     Route: 048
  14. VOLTAREN [Suspect]
     Active Substance: DICLOFENAC SODIUM
     Indication: ARTHRITIS
     Dosage: UNKNOWN
     Route: 061
  15. BABY ASPIRIN [Concomitant]
     Active Substance: ASPIRIN
     Dosage: OT, EVERY TWO DAYS
  16. BABY ASPIRIN [Concomitant]
     Active Substance: ASPIRIN
     Dosage: OT, QD
  17. BABY ASPIRIN [Concomitant]
     Active Substance: ASPIRIN
     Dosage: 80 MG, UNK
     Route: 065
  18. BABY ASPIRIN [Concomitant]
     Active Substance: ASPIRIN
     Dosage: OT, EVERY TWO DAYS
  19. BABY ASPIRIN [Concomitant]
     Active Substance: ASPIRIN
     Dosage: 80 MG, UNK
     Route: 065
  20. BABY ASPIRIN [Concomitant]
     Active Substance: ASPIRIN
     Dosage: UNK OT, QD
  21. LANSOPRAZOLE. [Concomitant]
     Active Substance: LANSOPRAZOLE
     Route: 065
  22. VENTOLINE [Concomitant]
     Active Substance: ALBUTEROL
     Dosage: OT, PRN
     Route: 065
  23. BABY ASPIRIN [Concomitant]
     Active Substance: ASPIRIN
     Dosage: OT, EVERY TWO DAYS
  24. BABY ASPIRIN [Concomitant]
     Active Substance: ASPIRIN
     Dosage: OT, EVERY TWO DAYS
  25. JAKAVI [Suspect]
     Active Substance: RUXOLITINIB
     Dosage: 20 MG, BID
     Route: 048
  26. AMLODIPINE [Concomitant]
     Active Substance: AMLODIPINE BESYLATE
     Dosage: 10 MG, QD
     Route: 065
  27. AMLODIPINE [Concomitant]
     Active Substance: AMLODIPINE BESYLATE
     Dosage: 10 MG, QD
     Route: 065
  28. AMLODIPINE [Concomitant]
     Active Substance: AMLODIPINE BESYLATE
     Dosage: 10 MG, QD
     Route: 065
  29. LANSOPRAZOLE. [Concomitant]
     Active Substance: LANSOPRAZOLE
     Indication: PRODUCT USED FOR UNKNOWN INDICATION
     Dosage: UNK
     Route: 065
  30. VENTOLINE [Concomitant]
     Active Substance: ALBUTEROL
     Dosage: OT, PRN
     Route: 065
  31. VENTOLINE [Concomitant]
     Active Substance: ALBUTEROL
     Dosage: OT, PRN
     Route: 065
  32. BABY ASPIRIN [Concomitant]
     Active Substance: ASPIRIN
     Dosage: OT, QD
  33. BABY ASPIRIN [Concomitant]
     Active Substance: ASPIRIN
     Dosage: OT, QD
  34. HYDREA [Concomitant]
     Active Substance: HYDROXYUREA
     Indication: PRODUCT USED FOR UNKNOWN INDICATION
     Dosage: UNK
     Route: 065
  35. AMLODIPINE [Concomitant]
     Active Substance: AMLODIPINE BESYLATE
     Dosage: 10 MG, QD
     Route: 065
  36. LANSOPRAZOLE. [Concomitant]
     Active Substance: LANSOPRAZOLE
     Route: 065
  37. VENTOLINE [Concomitant]
     Active Substance: ALBUTEROL
     Dosage: OT, PRN
     Route: 065
  38. VENTOLINE [Concomitant]
     Active Substance: ALBUTEROL
     Dosage: OT, PRN
     Route: 065
  39. BABY ASPIRIN [Concomitant]
     Active Substance: ASPIRIN
     Dosage: OT, EVERY TWO DAYS
     Route: 065
  40. BABY ASPIRIN [Concomitant]
     Active Substance: ASPIRIN
     Dosage: 80 MG, UNK
     Route: 065
  41. BABY ASPIRIN [Concomitant]
     Active Substance: ASPIRIN
     Dosage: OT, QD
  42. AMLODIPINE [Concomitant]
     Active Substance: AMLODIPINE BESYLATE
     Dosage: 10 MG, QD
     Route: 065
  43. VENTOLINE [Concomitant]
     Active Substance: ALBUTEROL
     Dosage: OT, PRN
     Route: 065
  44. BABY ASPIRIN [Concomitant]
     Active Substance: ASPIRIN
     Indication: PRODUCT USED FOR UNKNOWN INDICATION
     Dosage: UNK
     Route: 065
  45. BABY ASPIRIN [Concomitant]
     Active Substance: ASPIRIN
     Dosage: 80 MG, UNK
     Route: 065
  46. NEXIUM 1-2-3 [Concomitant]
     Active Substance: AMOXICILLIN\CLARITHROMYCIN\ESOMEPRAZOLE
     Indication: PRODUCT USED FOR UNKNOWN INDICATION
     Dosage: UNK
     Route: 065
  47. NAPROXEN. [Suspect]
     Active Substance: NAPROXEN
     Indication: ARTHRALGIA
     Route: 065
  48. AMLODIPINE [Concomitant]
     Active Substance: AMLODIPINE BESYLATE
     Indication: PRODUCT USED FOR UNKNOWN INDICATION
     Dosage: UNK
     Route: 065
  49. AMLODIPINE [Concomitant]
     Active Substance: AMLODIPINE BESYLATE
     Dosage: 10 MG, QD
     Route: 065
  50. AMLODIPINE [Concomitant]
     Active Substance: AMLODIPINE BESYLATE
     Dosage: 10 MG, QD
     Route: 065

REACTIONS (35)
  - Pneumonia [Recovered/Resolved]
  - Asthma [Unknown]
  - Haemoglobin abnormal [Unknown]
  - Constipation [Recovering/Resolving]
  - Nerve compression [Unknown]
  - Arthralgia [Unknown]
  - Paraesthesia oral [Recovered/Resolved]
  - Bone pain [Unknown]
  - Gait disturbance [Unknown]
  - Musculoskeletal pain [Unknown]
  - Asthenia [Unknown]
  - Nasopharyngitis [Recovering/Resolving]
  - Back pain [Unknown]
  - Splenomegaly [Unknown]
  - Neck pain [Unknown]
  - Contusion [Not Recovered/Not Resolved]
  - Headache [Unknown]
  - Increased tendency to bruise [Unknown]
  - Hypoaesthesia oral [Recovered/Resolved]
  - Fatigue [Recovering/Resolving]
  - Energy increased [Recovering/Resolving]
  - Muscular weakness [Unknown]
  - Haemoglobin decreased [Unknown]
  - Hyperaesthesia [Unknown]
  - Malaise [Unknown]
  - Increased appetite [Unknown]
  - Pain [Unknown]
  - Lymphocyte count decreased [Unknown]
  - Abdominal discomfort [Recovering/Resolving]
  - Platelet count decreased [Unknown]
  - Pain in extremity [Not Recovered/Not Resolved]
  - Dyspnoea [Unknown]
  - Chills [Unknown]
  - Epistaxis [Unknown]
  - Bronchitis [Unknown]

NARRATIVE: CASE EVENT DATE: 201308
